FAERS Safety Report 4820243-2 (Version None)
Quarter: 2005Q4

REPORT INFORMATION
  Report Type: 
  Country: None (occurrence: None)
  Receive Date: 20051011
  Receipt Date: 20050210
  Transmission Date: 20060501
  Serious: Yes (Life-Threatening)
  Sender: FDA-Public Use
  Company Number: 2005US000196

PATIENT
  Age: 40 Year
  Sex: Male
  Weight: 57 kg

DRUGS (1)
  1. AMBISOME [Suspect]
     Indication: MENINGITIS PNEUMOCOCCAL
     Dosage: 240 MG, UID/QD, IV NOS
     Route: 042
     Dates: start: 20041106, end: 20041206

REACTIONS (2)
  - BLOOD POTASSIUM INCREASED [None]
  - CARDIAC ARREST [None]
